FAERS Safety Report 13895295 (Version 1)
Quarter: 2017Q3

REPORT INFORMATION
  Report Type: Spontaneous
  Country: US (occurrence: US)
  Receive Date: 20170818
  Receipt Date: 20170818
  Transmission Date: 20171127
  Serious: Yes (Hospitalization)
  Sender: FDA-Public Use
  Company Number: None

PATIENT
  Age: 69 Year
  Sex: Female
  Weight: 82 kg

DRUGS (2)
  1. DEFINITY [Suspect]
     Active Substance: PERFLUTREN
     Indication: CARDIOVASCULAR DISORDER
     Route: 040
     Dates: start: 20170731, end: 20170731
  2. DEFINITY [Suspect]
     Active Substance: PERFLUTREN
     Indication: IMAGING PROCEDURE
     Route: 040
     Dates: start: 20170731, end: 20170731

REACTIONS (5)
  - Cardiac arrest [None]
  - Feeling abnormal [None]
  - Unresponsive to stimuli [None]
  - Skin discolouration [None]
  - Cardio-respiratory arrest [None]

NARRATIVE: CASE EVENT DATE: 20170731
